FAERS Safety Report 17016416 (Version 2)
Quarter: 2019Q4

REPORT INFORMATION
  Report Type: Report from Study
  Country: US (occurrence: US)
  Receive Date: 20191111
  Receipt Date: 20191129
  Transmission Date: 20200122
  Serious: Yes (Hospitalization)
  Sender: FDA-Public Use
  Company Number: NVSC2019US024663

PATIENT
  Age: 37 Year
  Sex: Female
  Weight: 97.51 kg

DRUGS (1)
  1. GILENYA [Suspect]
     Active Substance: FINGOLIMOD HYDROCHLORIDE
     Indication: MULTIPLE SCLEROSIS
     Dosage: 0.5 MG, QD
     Route: 048
     Dates: start: 20191031

REACTIONS (25)
  - Gait inability [Unknown]
  - Pallor [Unknown]
  - Limb discomfort [Unknown]
  - Hypoaesthesia [Unknown]
  - Migraine [Unknown]
  - Vision blurred [Unknown]
  - Blood pressure decreased [Unknown]
  - Cognitive disorder [Unknown]
  - Dizziness [Unknown]
  - Micturition urgency [Unknown]
  - Paraesthesia [Unknown]
  - Hypotension [Unknown]
  - Hyperhidrosis [Unknown]
  - Lethargy [Unknown]
  - Dyspnoea [Unknown]
  - Electrocardiogram ST segment abnormal [Unknown]
  - Feeling abnormal [Unknown]
  - Palpitations [Unknown]
  - Muscular weakness [Unknown]
  - Fatigue [Unknown]
  - Sleep disorder [Unknown]
  - Intervertebral disc protrusion [Unknown]
  - Pain in extremity [Unknown]
  - Heat stroke [Unknown]
  - Sensory disturbance [Unknown]

NARRATIVE: CASE EVENT DATE: 2019
